FAERS Safety Report 16056573 (Version 1)
Quarter: 2019Q2

REPORT INFORMATION
  Report Type: Spontaneous
  Country: US (occurrence: US)
  Receive Date: 20190309
  Receipt Date: 20190309
  Transmission Date: 20190711
  Serious: Yes (Hospitalization)
  Sender: FDA-Public Use
  Company Number: None

PATIENT
  Age: 31 Year
  Sex: Female
  Weight: 60.75 kg

DRUGS (1)
  1. DOXYCYCLINE HYCLATE. [Suspect]
     Active Substance: DOXYCYCLINE HYCLATE
     Indication: SINUS DISORDER
     Dosage: ?          QUANTITY:20 CAPSULE(S);?
     Route: 048
     Dates: start: 20190227, end: 20190308

REACTIONS (7)
  - Anxiety [None]
  - Pleurisy [None]
  - Chest pain [None]
  - Heart rate increased [None]
  - Headache [None]
  - Depression [None]
  - Abdominal discomfort [None]

NARRATIVE: CASE EVENT DATE: 20190302
